FAERS Safety Report 8247841-0 (Version None)
Quarter: 2012Q1

REPORT INFORMATION
  Report Type: 
  Country: None (occurrence: None)
  Receive Date: 20120330
  Receipt Date: 20120326
  Transmission Date: 20120608
  Serious: Yes (Life-Threatening, Hospitalization)
  Sender: FDA-Public Use
  Company Number: NO-JNJFOC-20060900473

PATIENT
  Sex: Male
  Weight: 139 kg

DRUGS (10)
  1. CONCERTA [Suspect]
     Dosage: 36MG IN THE MORNING, 18MG IN THE EVENING
     Route: 048
     Dates: start: 20051031
  2. CONCERTA [Suspect]
     Dosage: 36MG IN THE MORNING, 18MG IN THE EVENING
     Route: 048
     Dates: start: 20060810, end: 20060811
  3. SEROQUEL [Suspect]
     Dosage: 900MG+300 MG
     Route: 048
     Dates: start: 20060810, end: 20060811
  4. SEROQUEL [Suspect]
     Dosage: 900MG+300 MG
     Route: 048
     Dates: start: 20060804
  5. SEROQUEL [Suspect]
     Dosage: 300MG IN THE MORNING, 600MG IN THE EVENING
     Route: 048
     Dates: end: 20050612
  6. SEROQUEL [Suspect]
     Indication: MENTAL DISORDER
     Dosage: 300MG IN THE MORNING, 600MG IN THE EVENING
     Route: 048
     Dates: start: 20050401
  7. SEROQUEL [Suspect]
     Dosage: 900MG+300 MG
     Route: 048
     Dates: start: 20050613, end: 20050822
  8. CONCERTA [Suspect]
     Indication: ATTENTION DEFICIT/HYPERACTIVITY DISORDER
     Dosage: 36MG IN THE MORNING, 18MG IN THE EVENING
     Route: 048
     Dates: start: 20051003, end: 20051030
  9. CONCERTA [Suspect]
     Dosage: 36MG IN THE MORNING, 18MG IN THE EVENING
     Route: 048
     Dates: start: 20050601
  10. SEROQUEL [Suspect]
     Dosage: 900MG+300 MG
     Route: 048
     Dates: start: 20060209, end: 20060803

REACTIONS (1)
  - CONGESTIVE CARDIOMYOPATHY [None]
